FAERS Safety Report 25489260 (Version 1)
Quarter: 2025Q2

REPORT INFORMATION
  Report Type: Spontaneous
  Country: JP (occurrence: JP)
  Receive Date: 20250627
  Receipt Date: 20250627
  Transmission Date: 20250717
  Serious: Yes (Hospitalization, Other)
  Sender: OTSUKA
  Company Number: JP-MMM-Otsuka-KEXSRAV5

PATIENT
  Age: 9 Decade

DRUGS (3)
  1. REXULTI [Suspect]
     Active Substance: BREXPIPRAZOLE
     Indication: Dementia Alzheimer^s type
     Dosage: 0.5 MG/DAY
     Route: 048
  2. REXULTI [Suspect]
     Active Substance: BREXPIPRAZOLE
     Indication: Agitation
  3. REXULTI [Suspect]
     Active Substance: BREXPIPRAZOLE
     Indication: Irritability

REACTIONS (2)
  - Compression fracture [Not Recovered/Not Resolved]
  - Fall [Unknown]
